FAERS Safety Report 10003514 (Version 2)
Quarter: 2014Q1

REPORT INFORMATION
  Report Type: Not Available
  Country: US (occurrence: US)
  Receive Date: 20140312
  Receipt Date: 20140321
  Transmission Date: 20141002
  Serious: Yes (Hospitalization)
  Sender: FDA-Public Use
  Company Number: US-VIROPHARMA INCORPORATED-20140227CINRY5895

PATIENT
  Age: 29 Year
  Sex: Male
  Weight: 65.83 kg

DRUGS (4)
  1. CINRYZE (C1 ESTERASE INHIBITOR (HUMAN)) [Suspect]
     Indication: HEREDITARY ANGIOEDEMA
     Route: 042
     Dates: start: 20131210, end: 20140222
  2. CINRYZE (C1 ESTERASE INHIBITOR (HUMAN)) [Suspect]
     Indication: PROPHYLAXIS
  3. BERINERT [Suspect]
     Indication: HEREDITARY ANGIOEDEMA
  4. FIRAZYR [Concomitant]
     Dosage: UNKNOWN

REACTIONS (5)
  - Pain in extremity [Recovered/Resolved]
  - Hereditary angioedema [Recovered/Resolved]
  - Anxiety [Recovered/Resolved]
  - Panic attack [Recovered/Resolved]
  - Depression [Recovered/Resolved]
